FAERS Safety Report 4861014-0 (Version None)
Quarter: 2005Q4

REPORT INFORMATION
  Report Type: 
  Country: None (occurrence: None)
  Receive Date: 20051220
  Receipt Date: 20050929
  Transmission Date: 20060501
  Serious: No
  Sender: FDA-Public Use
  Company Number: US-GLAXOSMITHKLINE-A0576399A

PATIENT
  Age: 59 Year
  Sex: Female

DRUGS (9)
  1. TAGAMET [Suspect]
     Dosage: 400MG TWICE PER DAY
     Route: 048
     Dates: start: 20050901, end: 20050912
  2. DECADRON [Concomitant]
  3. ESTRACE [Concomitant]
  4. ALLEGRA [Concomitant]
  5. SINGULAIR [Concomitant]
  6. PREVACID [Concomitant]
  7. OMNICEF [Concomitant]
  8. PREDNISONE TAB [Concomitant]
  9. ZYRTEC [Concomitant]

REACTIONS (4)
  - BLISTER [None]
  - HYPERSENSITIVITY [None]
  - PRURITUS [None]
  - SOMNOLENCE [None]
